FAERS Safety Report 7699949-6 (Version None)
Quarter: 2011Q3

REPORT INFORMATION
  Report Type: 
  Country: None (occurrence: None)
  Receive Date: 20110822
  Receipt Date: 20100127
  Transmission Date: 20111222
  Serious: No
  Sender: FDA-Public Use
  Company Number: US-BAYER-201012804NA

PATIENT
  Sex: Female

DRUGS (1)
  1. ANGELIQ [Suspect]
     Indication: HOT FLUSH
     Dosage: UNK
     Dates: start: 20081001

REACTIONS (5)
  - HEADACHE [None]
  - VISUAL IMPAIRMENT [None]
  - DYSMENORRHOEA [None]
  - MENSTRUATION IRREGULAR [None]
  - DIZZINESS [None]
